FAERS Safety Report 7458115-X (Version None)
Quarter: 2011Q2

REPORT INFORMATION
  Report Type: 
  Country: None (occurrence: None)
  Receive Date: 20110504
  Receipt Date: 20110425
  Transmission Date: 20111010
  Serious: Yes (Hospitalization)
  Sender: FDA-Public Use
  Company Number: IN-ASTRAZENECA-2011SE13359

PATIENT
  Age: 45 Year
  Sex: Female
  Weight: 50 kg

DRUGS (4)
  1. NEXIUM IV [Suspect]
     Indication: ABDOMINAL PAIN
     Route: 042
     Dates: start: 20110304, end: 20110304
  2. NEXIUM IV [Suspect]
     Indication: VOMITING
     Route: 042
     Dates: start: 20110304, end: 20110304
  3. EMESET [Concomitant]
     Indication: NAUSEA
     Dosage: ONCE/SINGLE ADMINISTRATION
     Route: 042
     Dates: start: 20110304, end: 20110304
  4. NEXIUM IV [Suspect]
     Indication: DIARRHOEA
     Route: 042
     Dates: start: 20110304, end: 20110304

REACTIONS (6)
  - ASTHENIA [None]
  - RASH [None]
  - MUSCLE SPASMS [None]
  - OXYGEN SATURATION DECREASED [None]
  - INJECTION SITE ERYTHEMA [None]
  - HYPOTENSION [None]
